FAERS Safety Report 10416534 (Version 1)
Quarter: 2014Q3

REPORT INFORMATION
  Report Type: Spontaneous
  Country: US (occurrence: None)
  Receive Date: 20140827
  Receipt Date: 20140827
  Transmission Date: 20150326
  Serious: No
  Sender: FDA-Public Use
  Company Number: None

PATIENT
  Age: 15 Year
  Sex: Female
  Weight: 67.59 kg

DRUGS (1)
  1. TOPIRAMATE. [Suspect]
     Active Substance: TOPIRAMATE
     Indication: MIGRAINE
     Dosage: 1 AT BEDTIME TAKEN BY MOUTH
     Route: 048

REACTIONS (2)
  - Eye pain [None]
  - Visual impairment [None]

NARRATIVE: CASE EVENT DATE: 20140826
